FAERS Safety Report 14756964 (Version 1)
Quarter: 2018Q2

REPORT INFORMATION
  Report Type: Spontaneous
  Country: US (occurrence: US)
  Receive Date: 20180408
  Receipt Date: 20180408
  Transmission Date: 20180711
  Serious: Yes (Life-Threatening, Hospitalization)
  Sender: FDA-Public Use
  Company Number: None

PATIENT
  Age: 23 Year
  Sex: Male
  Weight: 59.4 kg

DRUGS (3)
  1. LOPERAMIDE, 2 MG [Suspect]
     Active Substance: LOPERAMIDE
  2. BUSPIRONE [Concomitant]
     Active Substance: BUSPIRONE HYDROCHLORIDE
  3. SEROQUEL XR [Concomitant]
     Active Substance: QUETIAPINE FUMARATE

REACTIONS (3)
  - Drug abuse [None]
  - Intentional overdose [None]
  - Intentional product use issue [None]

NARRATIVE: CASE EVENT DATE: 20180408
